FAERS Safety Report 8335810-1 (Version None)
Quarter: 2012Q2

REPORT INFORMATION
  Report Type: 
  Country: None (occurrence: None)
  Receive Date: 20120504
  Receipt Date: 20090812
  Transmission Date: 20120825
  Serious: Yes (Death, Other)
  Sender: FDA-Public Use
  Company Number: US-BAYER-200920296NA

PATIENT
  Age: 53 Year
  Sex: Male
  Weight: 94.8 kg

DRUGS (69)
  1. OPTIMARK [Suspect]
     Indication: NUCLEAR MAGNETIC RESONANCE IMAGING
  2. LEXAPRO [Concomitant]
  3. XYZAL [Concomitant]
  4. NOVOLOG [Concomitant]
  5. VANCOMYCIN [Concomitant]
     Route: 042
  6. MAXAIR MDI [Concomitant]
  7. EFFEXOR [Concomitant]
  8. LOVENOX [Concomitant]
  9. MAGNEVIST [Suspect]
     Dosage: 20 ML, ONCE
     Dates: start: 20070919, end: 20070919
  10. COUMADIN [Concomitant]
  11. ASPIRIN [Concomitant]
  12. TOPROL-XL [Concomitant]
  13. CIPROFLOXACIN [Concomitant]
  14. ACTIGALL [Concomitant]
  15. DOSS [ALFACALCIDOL] [Concomitant]
  16. WELLBUTRIN [Concomitant]
  17. MAGNEVIST [Suspect]
     Dates: start: 20040801, end: 20040801
  18. COREG [Concomitant]
  19. NEPHROCAPS [Concomitant]
  20. RISPERDAL [Concomitant]
  21. REMERON [Concomitant]
  22. PANCREASE [Concomitant]
  23. ALBUTEROL [Concomitant]
  24. SEVELAMER [Concomitant]
  25. AVELOX [Concomitant]
  26. DANOCRINE [Concomitant]
  27. PREVACID [Concomitant]
  28. DIOVAN [Concomitant]
  29. IRON [IRON] [Concomitant]
  30. CALCIUM CARBONATE [Concomitant]
  31. CEFTAZIDIME [Concomitant]
  32. VICODIN [Concomitant]
  33. SENOKOT [Concomitant]
  34. MAGNEVIST [Suspect]
     Indication: NUCLEAR MAGNETIC RESONANCE IMAGING
     Route: 042
     Dates: start: 20040921, end: 20040921
  35. MAGNEVIST [Suspect]
     Route: 042
     Dates: start: 20060207, end: 20060207
  36. MULTIHANCE [Suspect]
     Indication: NUCLEAR MAGNETIC RESONANCE IMAGING
  37. DANAZOL [Concomitant]
  38. HEPARIN [Concomitant]
     Route: 058
  39. TIAZAC [Concomitant]
  40. EPOGEN [Concomitant]
     Dosage: 10,000 ON MON/WED/FRI
     Route: 058
     Dates: start: 20071006
  41. PREDNISONE TAB [Concomitant]
  42. CALCIUM CARBONATE [Concomitant]
  43. OMNISCAN [Suspect]
     Indication: NUCLEAR MAGNETIC RESONANCE IMAGING
  44. PROHANCE [Suspect]
     Indication: NUCLEAR MAGNETIC RESONANCE IMAGING
  45. RENAGEL [Concomitant]
  46. EPOETIN ALFA [Concomitant]
  47. ALLOPURINOL [Concomitant]
  48. COMPAZINE [Concomitant]
  49. CLARITIN [Concomitant]
  50. TEQUIN [Concomitant]
  51. REQUIP [Concomitant]
  52. MAGNEVIST [Suspect]
     Route: 042
     Dates: start: 20070822, end: 20070822
  53. MAGNEVIST [Suspect]
     Dosage: 20 ML, ONCE
     Route: 042
     Dates: start: 20070901, end: 20070901
  54. PRILOSEC [Concomitant]
  55. PRAZOSIN HCL [Concomitant]
  56. FOLIC ACID [Concomitant]
  57. KEPPRA [Concomitant]
  58. DILAUDID [Concomitant]
  59. MAGNEVIST [Suspect]
     Indication: NUCLEAR MAGNETIC RESONANCE IMAGING BRAIN
     Route: 042
     Dates: start: 20030312, end: 20030312
  60. MAGNEVIST [Suspect]
     Dosage: UNK
  61. REQUIP [Concomitant]
  62. AMARYL [Concomitant]
  63. ZOLOFT [Concomitant]
  64. GLYCINE [Concomitant]
  65. PANCRELIPASE [Concomitant]
  66. OXYCODONE HCL [Concomitant]
  67. DURAGESIC-100 [Concomitant]
  68. INSULIN [INSULIN] [Concomitant]
  69. VANCOMYCIN [Concomitant]

REACTIONS (33)
  - GENERAL PHYSICAL HEALTH DETERIORATION [None]
  - OEDEMA PERIPHERAL [None]
  - ARTHRALGIA [None]
  - SCAR [None]
  - SKIN HYPERTROPHY [None]
  - SKIN HYPERPIGMENTATION [None]
  - SKIN EXFOLIATION [None]
  - SKIN DISORDER [None]
  - MOBILITY DECREASED [None]
  - PAIN IN EXTREMITY [None]
  - OEDEMA [None]
  - JOINT CONTRACTURE [None]
  - GAIT DISTURBANCE [None]
  - BACK DISORDER [None]
  - DEFORMITY [None]
  - SKIN INDURATION [None]
  - HYPOAESTHESIA [None]
  - MUSCULAR WEAKNESS [None]
  - SKIN TIGHTNESS [None]
  - PARAESTHESIA [None]
  - NEPHROGENIC SYSTEMIC FIBROSIS [None]
  - PAIN [None]
  - ERYTHEMA [None]
  - HYPERKERATOSIS [None]
  - ANXIETY [None]
  - JOINT RANGE OF MOTION DECREASED [None]
  - PAIN OF SKIN [None]
  - BURNING SENSATION [None]
  - FIBROSIS [None]
  - SKIN OEDEMA [None]
  - MUSCULOSKELETAL STIFFNESS [None]
  - SKIN DISCOLOURATION [None]
  - DEPRESSION [None]
